FAERS Safety Report 11422212 (Version 1)
Quarter: 2015Q3

REPORT INFORMATION
  Report Type: Spontaneous
  Country: US (occurrence: None)
  Receive Date: 20150825
  Receipt Date: 20150825
  Transmission Date: 20151125
  Serious: Yes (Hospitalization)
  Sender: FDA-Public Use
  Company Number: 1713747-2015-999266

PATIENT
  Age: 62 Year
  Sex: Female
  Weight: 77 kg

DRUGS (11)
  1. DELFLEX [Suspect]
     Active Substance: CALCIUM CHLORIDE\DEXTROSE MONOHYDRATE\MAGNESIUM CHLORIDE\SODIUM CHLORIDE\SODIUM LACTATE
     Indication: PERITONEAL DIALYSIS
     Route: 033
  2. FERROUS SULFATE [Concomitant]
     Active Substance: FERROUS SULFATE\FERROUS SULFATE, DRIED
  3. TUMS [Concomitant]
     Active Substance: CALCIUM CARBONATE
  4. NOVOLOG INSULIN  AND LUNTUS INSULIN ON SLIDING SCALE [Concomitant]
  5. LIBERTY CYCLER [Concomitant]
     Active Substance: DEVICE
  6. EPOGEN [Concomitant]
     Active Substance: ERYTHROPOIETIN
  7. VITAMIN D3 [Concomitant]
     Active Substance: CHOLECALCIFEROL
  8. BUMEX [Concomitant]
     Active Substance: BUMETANIDE
  9. LOPRESSOR [Concomitant]
     Active Substance: METOPROLOL TARTRATE
  10. PRAVACHOL [Concomitant]
     Active Substance: PRAVASTATIN SODIUM
  11. LIBERTY CYCLER SET [Concomitant]
     Active Substance: DEVICE

REACTIONS (1)
  - Blood sodium decreased [None]

NARRATIVE: CASE EVENT DATE: 20150514
